FAERS Safety Report 14414716 (Version 2)
Quarter: 2018Q2

REPORT INFORMATION
  Report Type: Report from Study
  Country: JP (occurrence: JP)
  Receive Date: 20180120
  Receipt Date: 20180404
  Transmission Date: 20180711
  Serious: Yes (Death, Life-Threatening)
  Sender: FDA-Public Use
  Company Number: JP-AMGEN-JPNCT2018008084

PATIENT
  Age: 62 Year
  Sex: Female
  Weight: 42 kg

DRUGS (27)
  1. DARBEPOETIN ALFA [Suspect]
     Active Substance: DARBEPOETIN ALFA
     Indication: MYELODYSPLASTIC SYNDROME
     Dosage: 120 MUG, UNK
     Route: 058
     Dates: start: 20161110
  2. FLUDARA [Suspect]
     Active Substance: FLUDARABINE PHOSPHATE
     Indication: MYELODYSPLASTIC SYNDROME
     Dosage: 39 MG, UNK
     Route: 048
     Dates: start: 20170908, end: 20170913
  3. JUZENTAIHOTO [Concomitant]
     Active Substance: HERBALS
     Indication: MYELODYSPLASTIC SYNDROME
     Dosage: 3 DF, UNK
     Route: 048
     Dates: start: 20161215, end: 20170124
  4. REBAMIPIDE [Concomitant]
     Active Substance: REBAMIPIDE
     Dosage: 300 MG, UNK
     Route: 048
     Dates: start: 20170119, end: 20170930
  5. VALACICLOVIR [Concomitant]
     Active Substance: VALACYCLOVIR HYDROCHLORIDE
     Dosage: 1000 MG, UNK
     Route: 048
     Dates: start: 20170906, end: 20170928
  6. METHOTREXATE. [Concomitant]
     Active Substance: METHOTREXATE
     Dosage: 10 MG, UNK
     Route: 065
     Dates: start: 20170916, end: 20170921
  7. DARBEPOETIN ALFA [Suspect]
     Active Substance: DARBEPOETIN ALFA
     Dosage: 240 MUG, QWK
     Route: 058
     Dates: start: 20170418
  8. DARBEPOETIN ALFA [Suspect]
     Active Substance: DARBEPOETIN ALFA
     Dosage: 240 MUG, QWK
     Route: 058
     Dates: start: 20170815
  9. BUSULFEX [Suspect]
     Active Substance: BUSULFAN
     Indication: MYELODYSPLASTIC SYNDROME
     Dosage: 128 MG, UNK
     Route: 041
     Dates: start: 20170910, end: 20170911
  10. URSO [Concomitant]
     Active Substance: URSODIOL
     Dosage: 600 MG, UNK
     Route: 048
     Dates: start: 20170411, end: 20170930
  11. DAIPHEN [Concomitant]
     Active Substance: SULFAMETHOXAZOLE\TRIMETHOPRIM
     Dosage: 1 DF, UNK
     Route: 048
     Dates: start: 20170906, end: 20170914
  12. CEFAMEZIN [Concomitant]
     Active Substance: CEFAZOLIN
     Dosage: 3 G, UNK
     Route: 065
     Dates: start: 20170915, end: 20170917
  13. GLAKAY [Concomitant]
     Active Substance: MENATETRENONE
     Indication: MYELODYSPLASTIC SYNDROME
     Dosage: 45 MG, UNK
     Route: 048
     Dates: start: 20170105, end: 20170124
  14. CIPROFLOXACIN. [Concomitant]
     Active Substance: CIPROFLOXACIN
     Dosage: 600 MG, UNK
     Route: 048
     Dates: start: 20170906, end: 20170930
  15. VIDAZA [Concomitant]
     Active Substance: AZACITIDINE
     Indication: MYELODYSPLASTIC SYNDROME
     Dosage: 95 MG, UNK
     Route: 065
     Dates: start: 20170120, end: 20170728
  16. GRAN [Concomitant]
     Active Substance: FILGRASTIM
     Dosage: 300 MUG, UNK
     Route: 065
     Dates: start: 20170916, end: 20170929
  17. FAMOTIDINE. [Concomitant]
     Active Substance: FAMOTIDINE
     Dosage: 20 MG, UNK
     Route: 048
     Dates: start: 20170119, end: 20170930
  18. DARBEPOETIN ALFA [Suspect]
     Active Substance: DARBEPOETIN ALFA
     Dosage: 240 MUG, QWK
     Route: 058
     Dates: start: 20170209
  19. DARBEPOETIN ALFA [Suspect]
     Active Substance: DARBEPOETIN ALFA
     Dosage: 240 MUG, QWK
     Route: 058
     Dates: start: 20170627
  20. DARBEPOETIN ALFA [Suspect]
     Active Substance: DARBEPOETIN ALFA
     Dosage: 240 MUG, QWK
     Route: 058
     Dates: start: 20170922, end: 20170929
  21. FOLIAMIN [Concomitant]
     Active Substance: FOLIC ACID
     Dosage: 15 MG, UNK
     Route: 048
     Dates: start: 20170206, end: 20170930
  22. PROGRAF [Concomitant]
     Active Substance: TACROLIMUS\TACROLIMUS ANHYDROUS
     Dosage: 0.8 MG, UNK
     Route: 041
     Dates: start: 20170914, end: 20171001
  23. DARBEPOETIN ALFA [Suspect]
     Active Substance: DARBEPOETIN ALFA
     Dosage: 240 MUG, QWK
     Route: 058
     Dates: start: 20170309
  24. BAKTAR [Suspect]
     Active Substance: SULFAMETHOXAZOLE\TRIMETHOPRIM
     Indication: PRODUCT USED FOR UNKNOWN INDICATION
     Dosage: 1 DF, UNK
     Route: 048
     Dates: start: 20170119, end: 20170328
  25. DARBEPOETIN ALFA [Suspect]
     Active Substance: DARBEPOETIN ALFA
     Dosage: 240 MUG, QWK
     Route: 058
     Dates: start: 20161206
  26. DARBEPOETIN ALFA [Suspect]
     Active Substance: DARBEPOETIN ALFA
     Dosage: 240 MUG, QWK
     Route: 058
     Dates: start: 20170523
  27. TOYOFAROL [Concomitant]
     Active Substance: ALFACALCIDOL
     Indication: MYELODYSPLASTIC SYNDROME
     Dosage: 1.0 MUG, UNK
     Route: 048
     Dates: start: 20170105, end: 20170130

REACTIONS (3)
  - Neutropenia [Recovering/Resolving]
  - Liver disorder [Recovered/Resolved]
  - Cardiac failure [Fatal]

NARRATIVE: CASE EVENT DATE: 20170328
